FAERS Safety Report 9266304 (Version 2)
Quarter: 2013Q3

REPORT INFORMATION
  Report Type: Spontaneous
  Country: US (occurrence: US)
  Receive Date: 20130502
  Receipt Date: 20130828
  Transmission Date: 20140515
  Serious: Yes (Other)
  Sender: FDA-Public Use
  Company Number: US-BAYER-2013-051238

PATIENT
  Age: 79 Year
  Sex: Female

DRUGS (1)
  1. ADALAT CC [Suspect]
     Dosage: ABOUT 40 DF
     Dates: start: 201301

REACTIONS (4)
  - Vomiting [None]
  - Dysphagia [None]
  - Medication residue present [None]
  - Hypertension [None]
